FAERS Safety Report 10666411 (Version 2)
Quarter: 2014Q4

REPORT INFORMATION
  Report Type: Spontaneous
  Country: US (occurrence: US)
  Receive Date: 20141220
  Receipt Date: 20141220
  Transmission Date: 20150529
  Serious: No
  Sender: FDA-Public Use
  Company Number: US-BAUSCH-SYM-2013-14425

PATIENT
  Sex: Female

DRUGS (3)
  1. XENAZINE [Suspect]
     Active Substance: TETRABENAZINE
     Dosage: 1 TABLET, TWICE A DAY
     Route: 048
  2. XENAZINE [Suspect]
     Active Substance: TETRABENAZINE
     Indication: HUNTINGTON^S DISEASE
     Dosage: 1 TABLET, TWICE A DAY
     Route: 048
     Dates: start: 20120322
  3. XENAZINE [Suspect]
     Active Substance: TETRABENAZINE
     Dosage: 1 TABLET, 3 TIMES A DAY
     Route: 048

REACTIONS (3)
  - Somnolence [Not Recovered/Not Resolved]
  - Hyperhidrosis [Recovered/Resolved]
  - Dyskinesia [Recovered/Resolved]
